FAERS Safety Report 13913156 (Version 1)
Quarter: 2017Q3

REPORT INFORMATION
  Report Type: Spontaneous
  Country: US (occurrence: US)
  Receive Date: 20170828
  Receipt Date: 20170828
  Transmission Date: 20171127
  Serious: No
  Sender: FDA-Public Use
  Company Number: US-ROCHE-1125362

PATIENT
  Age: 12 Year
  Sex: Male

DRUGS (1)
  1. NUTROPIN AQ [Suspect]
     Active Substance: SOMATROPIN
     Indication: DWARFISM
     Route: 065

REACTIONS (5)
  - Headache [Unknown]
  - Dry skin [Unknown]
  - Pain [Unknown]
  - Nasal congestion [Unknown]
  - Erythema [Unknown]

NARRATIVE: CASE EVENT DATE: 19980604
